FAERS Safety Report 17475414 (Version 1)
Quarter: 2020Q1

REPORT INFORMATION
  Report Type: Report from Study
  Country: BR (occurrence: BR)
  Receive Date: 20200228
  Receipt Date: 20200228
  Transmission Date: 20200409
  Serious: Yes (Hospitalization, Other)
  Sender: FDA-Public Use
  Company Number: BR-JNJFOC-20190721495

PATIENT
  Sex: Male

DRUGS (2)
  1. STELARA [Suspect]
     Active Substance: USTEKINUMAB
     Route: 058
  2. STELARA [Suspect]
     Active Substance: USTEKINUMAB
     Indication: PSORIASIS
     Dosage: THE PATIENT WAS TREATED WITH INDUCTION DOSE FOLLOWED BY 90 MG ONCE EVERY EIGHT WEEKS.
     Route: 042
     Dates: start: 2019

REACTIONS (4)
  - Hypovolaemic shock [Unknown]
  - Duodenal ulcer haemorrhage [Unknown]
  - Pneumonia [Recovering/Resolving]
  - Diarrhoea [Unknown]
